FAERS Safety Report 7562448-6 (Version None)
Quarter: 2011Q2

REPORT INFORMATION
  Report Type: 
  Country: None (occurrence: None)
  Receive Date: 20110614
  Receipt Date: 20110531
  Transmission Date: 20111010
  Serious: Yes (Other)
  Sender: FDA-Public Use
  Company Number: US-1186189

PATIENT
  Sex: Male

DRUGS (12)
  1. LASIX [Concomitant]
  2. BSS INTRAOCULAR SOLUTION [Suspect]
     Indication: VITRECTOMY
     Dosage: (INTRAOCULAR)
     Route: 031
     Dates: start: 20110511, end: 20110511
  3. PREVACID [Concomitant]
  4. SIMVASTATIN [Concomitant]
  5. BSS INTRAOCULAR SOLUTION [Suspect]
  6. BSS INTRAOCULAR SOLUTION [Suspect]
  7. INSULIN [Concomitant]
  8. ALDACTONE [Concomitant]
  9. WARFARIN SODIUM [Concomitant]
  10. FOSAMAX [Concomitant]
  11. RIFAXIMIN [Concomitant]
  12. BSS INTRAOCULAR SOLUTION [Suspect]

REACTIONS (3)
  - BLOOD GLUCOSE INCREASED [None]
  - ENDOPHTHALMITIS [None]
  - CATARACT [None]
